FAERS Safety Report 10072326 (Version 1)
Quarter: 2014Q2

REPORT INFORMATION
  Report Type: Spontaneous
  Country: US (occurrence: US)
  Receive Date: 20140411
  Receipt Date: 20140411
  Transmission Date: 20141212
  Serious: No
  Sender: FDA-Public Use
  Company Number: US-009507513-1404USA006180

PATIENT
  Age: 59 Year
  Sex: Female

DRUGS (1)
  1. SINEMET [Suspect]
     Dosage: UNK
     Route: 048
     Dates: start: 2003, end: 2003

REACTIONS (1)
  - Drug ineffective [Unknown]
